FAERS Safety Report 23612837 (Version 2)
Quarter: 2024Q2

REPORT INFORMATION
  Report Type: Report from Study
  Country: US (occurrence: US)
  Receive Date: 20240308
  Receipt Date: 20240509
  Transmission Date: 20240716
  Serious: No
  Sender: FDA-Public Use
  Company Number: US-INCYTE CORPORATION-2024IN001135

PATIENT

DRUGS (2)
  1. JAKAFI [Suspect]
     Active Substance: RUXOLITINIB
     Indication: Leukaemia
     Route: 048
  2. IBUPROFEN [Suspect]
     Active Substance: IBUPROFEN
     Route: 065

REACTIONS (9)
  - Visual impairment [Unknown]
  - Off label use [Unknown]
  - Tooth disorder [Unknown]
  - Dental implantation [Unknown]
  - Eye disorder [Unknown]
  - Trabeculoplasty [Unknown]
  - Drug interaction [Unknown]
  - Illness [Unknown]
  - Dizziness [Unknown]
